FAERS Safety Report 8089605-7 (Version None)
Quarter: 2012Q1

REPORT INFORMATION
  Report Type: 
  Country: None (occurrence: None)
  Receive Date: 20120128
  Receipt Date: 20110827
  Transmission Date: 20120608
  Serious: No
  Sender: FDA-Public Use
  Company Number: US-ABBOTT-11P-163-0726519-00

PATIENT
  Sex: Female

DRUGS (8)
  1. PHENERGAN [Concomitant]
     Indication: NAUSEA
  2. ULTRAM [Concomitant]
     Indication: PAIN
  3. HUMIRA [Suspect]
  4. HUMIRA [Suspect]
     Indication: CROHN'S DISEASE
     Route: 058
     Dates: start: 20110511, end: 20110511
  5. ANACORT [Concomitant]
     Indication: CROHN'S DISEASE
  6. VITAMIN B-12 [Concomitant]
     Indication: VITAMIN SUPPLEMENTATION
  7. POTASSIUM [Concomitant]
     Indication: MINERAL SUPPLEMENTATION
  8. MERCAPTOPURINE [Concomitant]
     Indication: PRODUCT USED FOR UNKNOWN INDICATION
     Dosage: 6-MP

REACTIONS (7)
  - NAUSEA [None]
  - INJECTION SITE PAIN [None]
  - INJECTION SITE NODULE [None]
  - INJECTION SITE ERYTHEMA [None]
  - HEADACHE [None]
  - INJECTION SITE HAEMATOMA [None]
  - VOMITING [None]
